FAERS Safety Report 19929788 (Version 5)
Quarter: 2022Q2

REPORT INFORMATION
  Report Type: Report from Study
  Country: ES (occurrence: ES)
  Receive Date: 20211007
  Receipt Date: 20220627
  Transmission Date: 20220721
  Serious: Yes (Hospitalization, Other)
  Sender: FDA-Public Use
  Company Number: ES-GILEAD-2021-0551384

PATIENT
  Age: 77 Year
  Sex: Male
  Weight: 101.6 kg

DRUGS (27)
  1. SACITUZUMAB GOVITECAN [Suspect]
     Active Substance: SACITUZUMAB GOVITECAN
     Indication: Transitional cell carcinoma
     Dosage: 1050 MG, Q1WK
     Route: 042
     Dates: start: 20210622
  2. SACITUZUMAB GOVITECAN [Suspect]
     Active Substance: SACITUZUMAB GOVITECAN
     Dosage: 1016 MG
     Route: 042
     Dates: start: 20210907
  3. ATEZOLIZUMAB [Suspect]
     Active Substance: ATEZOLIZUMAB
     Indication: Transitional cell carcinoma
     Dosage: 1200 MG, Q3WK
     Route: 041
     Dates: start: 20210622, end: 20210907
  4. AMLODIPINE [Concomitant]
     Active Substance: AMLODIPINE BESYLATE
  5. VALSARTAN [Concomitant]
     Active Substance: VALSARTAN
  6. HYDROCHLOROTHIAZIDE [Concomitant]
     Active Substance: HYDROCHLOROTHIAZIDE
  7. ASPIRIN [Concomitant]
     Active Substance: ASPIRIN
  8. OMEPRAZOLE [Concomitant]
     Active Substance: OMEPRAZOLE
  9. BIMATOPROST [Concomitant]
     Active Substance: BIMATOPROST
  10. ACETAMINOPHEN [Concomitant]
     Active Substance: ACETAMINOPHEN
  11. TAMSULOSIN [Concomitant]
     Active Substance: TAMSULOSIN
  12. BISOPROLOL [Concomitant]
     Active Substance: BISOPROLOL
  13. APIXABAN [Concomitant]
     Active Substance: APIXABAN
  14. DEXAMETHASONE [Concomitant]
     Active Substance: DEXAMETHASONE
  15. POLARAMINE [Concomitant]
     Active Substance: DEXCHLORPHENIRAMINE MALEATE
  16. RANITIDINE [Concomitant]
     Active Substance: RANITIDINE
  17. ZOFRAN [Concomitant]
     Active Substance: ONDANSETRON HYDROCHLORIDE
  18. FILGRASTIM [Concomitant]
     Active Substance: FILGRASTIM
  19. DEXCHLORPHENIRAMINE [Concomitant]
     Active Substance: DEXCHLORPHENIRAMINE
  20. LINEZOLID [Concomitant]
     Active Substance: LINEZOLID
     Dosage: UNK
     Dates: start: 20210923, end: 20211001
  21. MEROPENEM [Concomitant]
     Active Substance: MEROPENEM
     Dosage: UNK
     Dates: start: 20210923, end: 20211001
  22. PIPERACILLIN SODIUM\TAZOBACTAM SODIUM [Concomitant]
     Active Substance: PIPERACILLIN SODIUM\TAZOBACTAM SODIUM
  23. FLUCONAZOLE [Concomitant]
     Active Substance: FLUCONAZOLE
  24. AMIODARONE [Concomitant]
     Active Substance: AMIODARONE
  25. PEPTIDES NOS [Concomitant]
  26. LEVOTHYROXINE SODIUM [Concomitant]
     Active Substance: LEVOTHYROXINE SODIUM
     Indication: Hypothyroidism
     Dosage: UNK
     Dates: start: 20211116
  27. FERROUS SULFATE [Concomitant]
     Active Substance: FERROUS SULFATE
     Indication: Anaemia
     Dosage: UNK
     Dates: start: 20211116

REACTIONS (1)
  - Septic shock [Recovering/Resolving]

NARRATIVE: CASE EVENT DATE: 20210923
